FAERS Safety Report 24432947 (Version 1)
Quarter: 2024Q4

REPORT INFORMATION
  Report Type: Report from Study
  Country: US (occurrence: US)
  Receive Date: 20241014
  Receipt Date: 20241014
  Transmission Date: 20250114
  Serious: No
  Sender: DR REDDYS
  Company Number: US-drreddys-SPO/USA/23/0164324

PATIENT
  Age: 51 Year
  Sex: Female
  Weight: 100 kg

DRUGS (8)
  1. JAVYGTOR [Suspect]
     Active Substance: SAPROPTERIN DIHYDROCHLORIDE
     Indication: Phenylketonuria
     Dosage: DISSOLVE FOUR 500 MG POWDER PACKETS IN 4 TO 8 OUNCES OF WATER OR APPLE JUICE AND TAKE.
     Route: 048
  2. JAVYGTOR [Suspect]
     Active Substance: SAPROPTERIN DIHYDROCHLORIDE
     Dosage: DISSOLVE FOUR 500 MG POWDER PACKETS IN 4 TO 8 OUNCES OF WATER OR APPLE JUICE AND TAKE.
     Route: 048
  3. JAVYGTOR [Suspect]
     Active Substance: SAPROPTERIN DIHYDROCHLORIDE
     Dosage: DISSOLVE FOUR 500 MG POWDER PACKETS IN 4 TO 8 OUNCES OF WATER OR APPLE JUICE AND TAKE.
     Route: 048
  4. ZINC-220 [Concomitant]
     Indication: Product used for unknown indication
     Dosage: INC-220 50(220) MG
     Route: 065
  5. PROMETHAZINE HYDROCHLORIDE [Concomitant]
     Active Substance: PROMETHAZINE HYDROCHLORIDE
     Indication: Product used for unknown indication
     Dosage: INC-220 50(220) MG
     Route: 065
  6. SYNTHROID [Concomitant]
     Active Substance: LEVOTHYROXINE SODIUM
     Indication: Product used for unknown indication
     Dosage: INC-220 50(220) MG
     Route: 065
  7. ALBUTEROL SULFATE [Concomitant]
     Active Substance: ALBUTEROL SULFATE
     Indication: Product used for unknown indication
     Dosage: INC-220 50(220) MG
     Route: 065
  8. DIOVAN [Concomitant]
     Active Substance: VALSARTAN
     Indication: Product used for unknown indication
     Dosage: INC-220 50(220) MG
     Route: 065

REACTIONS (5)
  - Headache [Unknown]
  - COVID-19 [Not Recovered/Not Resolved]
  - Gastroenteritis viral [Unknown]
  - Decreased appetite [Unknown]
  - Product dose omission issue [Unknown]

NARRATIVE: CASE EVENT DATE: 20230414
